FAERS Safety Report 6554147-4 (Version None)
Quarter: 2010Q1

REPORT INFORMATION
  Report Type: 
  Country: None (occurrence: None)
  Receive Date: 20100125
  Receipt Date: 20100125
  Transmission Date: 20100710
  Serious: Yes (Other)
  Sender: FDA-Public Use
  Company Number: None

PATIENT
  Age: 63 Year
  Sex: Female

DRUGS (1)
  1. ZICAM NO DRIP LIQUID NASAL GEL [Suspect]
     Dosage: 1 APPLICATION IN EACH NOSTRIL
     Dates: start: 20050101

REACTIONS (4)
  - AGEUSIA [None]
  - ANOSMIA [None]
  - HYPOPHAGIA [None]
  - WEIGHT DECREASED [None]
